FAERS Safety Report 8716224 (Version 2)
Quarter: 2013Q2

REPORT INFORMATION
  Report Type: Report from Study
  Country: JP (occurrence: JP)
  Receive Date: 20120810
  Receipt Date: 20130605
  Transmission Date: 20140414
  Serious: Yes (Other)
  Sender: FDA-Public Use
  Company Number: JP-009507513-1207JPN007970

PATIENT
  Age: 59 Year
  Sex: Female
  Weight: 55 kg

DRUGS (7)
  1. PEGINTRON [Suspect]
     Indication: CHRONIC HEPATITIS C
     Dosage: 80MCG/WEEK
     Route: 058
     Dates: start: 20120515, end: 20120620
  2. REBETOL [Suspect]
     Indication: CHRONIC HEPATITIS C
     Dosage: 600 MG, UNK
     Route: 048
     Dates: start: 20120515, end: 20120612
  3. REBETOL [Suspect]
     Dosage: 400 MG, UNK
     Route: 048
     Dates: start: 20120613, end: 20120626
  4. TELAVIC [Suspect]
     Indication: CHRONIC HEPATITIS C
     Dosage: 2250 MG, ONCE
     Route: 048
     Dates: start: 20120515, end: 20120605
  5. TELAVIC [Suspect]
     Dosage: 1500 MG, ONCE
     Route: 048
     Dates: start: 20120606, end: 20120626
  6. ALLELOCK [Concomitant]
     Indication: PROPHYLAXIS
     Route: 048
     Dates: start: 20120515, end: 20120626
  7. RIKKUNSHI-TO [Concomitant]
     Indication: PROPHYLAXIS
     Dosage: POR,
     Route: 048
     Dates: start: 20120515, end: 20120626

REACTIONS (1)
  - Retinopathy [Recovering/Resolving]
